FAERS Safety Report 5630230-2 (Version None)
Quarter: 2008Q1

REPORT INFORMATION
  Report Type: 
  Country: None (occurrence: None)
  Receive Date: 20080219
  Receipt Date: 20080212
  Transmission Date: 20080703
  Serious: Yes (Other)
  Sender: FDA-Public Use
  Company Number: PHBS2007BR20982

PATIENT
  Age: 76 Year
  Sex: Female
  Weight: 67 kg

DRUGS (13)
  1. EXELON [Suspect]
     Indication: DEMENTIA ALZHEIMER'S TYPE
     Dosage: 1.5 MG/D
     Route: 048
  2. EXELON [Suspect]
     Dosage: 3 MG/D
     Route: 048
  3. EXELON [Suspect]
     Dosage: 4.5 MG, BID
     Route: 048
     Dates: start: 20070801, end: 20071213
  4. EXELON [Suspect]
     Dosage: 4.5 MG, QD
     Route: 048
     Dates: start: 20080212
  5. TRAMAL [Concomitant]
     Dosage: UNK, PRN
  6. ATENOLOL [Concomitant]
     Indication: HYPERTENSION
     Dosage: 100MG/DAY
     Route: 048
     Dates: start: 19970101
  7. EUTHYROX [Concomitant]
     Indication: HORMONE REPLACEMENT THERAPY
     Dosage: 50 MG, QD
     Route: 048
     Dates: start: 19990101
  8. SIMVASTATIN [Concomitant]
     Indication: BLOOD CHOLESTEROL
     Dosage: 20 MG, QD
     Route: 048
     Dates: start: 20030101
  9. ENALAPRIL MALEATE [Concomitant]
     Indication: HYPERTENSION
     Dosage: 50MG/DAY
     Route: 048
     Dates: start: 20050101
  10. METHOTREXATE [Concomitant]
     Indication: PAIN
     Dosage: 180 MG, QW
     Route: 048
     Dates: start: 20070801
  11. ASPIRIN [Concomitant]
     Indication: ANTICOAGULANT THERAPY
     Dosage: 100 MG, QD
     Route: 048
     Dates: start: 20040101
  12. OMEPRAZOLE [Concomitant]
     Indication: NAUSEA
     Dosage: 40 MG/D
     Route: 048
     Dates: start: 20070801
  13. EXELON [Suspect]
     Dosage: 9 MG, UNK
     Route: 062
     Dates: end: 20080211

REACTIONS (4)
  - ABDOMINAL PAIN UPPER [None]
  - BLOOD PRESSURE INCREASED [None]
  - MEMORY IMPAIRMENT [None]
  - NAUSEA [None]
